FAERS Safety Report 10017075 (Version 2)
Quarter: 2014Q2

REPORT INFORMATION
  Report Type: Spontaneous
  Country: US (occurrence: US)
  Receive Date: 20140318
  Receipt Date: 20140627
  Transmission Date: 20141212
  Serious: Yes (Hospitalization)
  Sender: FDA-Public Use
  Company Number: US-BIOGENIDEC-2014BI022532

PATIENT
  Age: 57 Year
  Sex: Male

DRUGS (14)
  1. TECFIDERA [Suspect]
     Indication: MULTIPLE SCLEROSIS
     Route: 048
     Dates: start: 20130606
  2. ANTIVERT [Concomitant]
  3. ASPIRIN [Concomitant]
  4. BACLOFEN [Concomitant]
  5. DETROL LA [Concomitant]
  6. EFFEXOR XR [Concomitant]
  7. INDERAL LA [Concomitant]
  8. KEPPRA [Concomitant]
  9. LOSARTAN POTASSIUM [Concomitant]
  10. NORCO [Concomitant]
  11. PRILOSEC [Concomitant]
  12. PROAIR HFA [Concomitant]
  13. VITAMIN B12 [Concomitant]
  14. VITAMIN D3 [Concomitant]

REACTIONS (2)
  - Renal cyst [Recovered/Resolved]
  - Multiple sclerosis relapse [Recovered/Resolved]
